FAERS Safety Report 4312540-4 (Version None)
Quarter: 2004Q1

REPORT INFORMATION
  Report Type: 
  Country: None (occurrence: None)
  Receive Date: 20040305
  Receipt Date: 20030708
  Transmission Date: 20041129
  Serious: Yes (Hospitalization)
  Sender: FDA-Public Use
  Company Number: PHBS2003JP07300

PATIENT
  Age: 83 Year
  Sex: Female

DRUGS (7)
  1. CALCITRIOL [Concomitant]
     Dosage: 0.5 UG/D
     Route: 048
     Dates: start: 20000424
  2. SULPIRIDE [Concomitant]
     Dosage: 150 MG/D
     Route: 048
     Dates: start: 20011121
  3. LAMISIL [Suspect]
     Indication: NAIL TINEA
     Dosage: 125 MG/D
     Route: 048
     Dates: start: 20021226
  4. NICERGOLINE [Suspect]
     Dosage: 15 MG/D
     Route: 048
     Dates: start: 20021226
  5. AMANTADINE HYDROCHLORIDE [Suspect]
     Dosage: 100 MG/D
     Route: 048
     Dates: start: 20020927
  6. RIVOTRIL [Suspect]
     Dosage: 0.5 MG/D
     Route: 048
     Dates: start: 20020612
  7. BROTIZOLAM [Suspect]
     Dosage: 0.25 MG/D
     Route: 048
     Dates: start: 20020527

REACTIONS (3)
  - CEREBRAL HAEMORRHAGE [None]
  - DIZZINESS [None]
  - SPEECH DISORDER [None]
